FAERS Safety Report 7384074-4 (Version None)
Quarter: 2011Q1

REPORT INFORMATION
  Report Type: 
  Country: None (occurrence: None)
  Receive Date: 20110330
  Receipt Date: 20110324
  Transmission Date: 20110831
  Serious: Yes (Hospitalization)
  Sender: FDA-Public Use
  Company Number: A0773153A

PATIENT
  Age: 51 Year
  Sex: Male
  Weight: 90.9 kg

DRUGS (7)
  1. AMARYL [Concomitant]
  2. LASIX [Concomitant]
     Dates: start: 20020101
  3. COREG [Concomitant]
     Dates: start: 20020101
  4. HUMALOG [Concomitant]
  5. GLUCOTROL XL [Concomitant]
  6. AVANDIA [Suspect]
     Indication: DIABETES MELLITUS
     Dosage: 8MG TWICE PER DAY
     Route: 048
     Dates: start: 20030701, end: 20071101
  7. TRICOR [Concomitant]

REACTIONS (3)
  - CARDIAC DISORDER [None]
  - CARDIAC FAILURE CONGESTIVE [None]
  - CARDIOMYOPATHY [None]
